FAERS Safety Report 25716308 (Version 2)
Quarter: 2025Q3

REPORT INFORMATION
  Report Type: Spontaneous
  Country: US (occurrence: US)
  Receive Date: 20250822
  Receipt Date: 20250929
  Transmission Date: 20251021
  Serious: Yes (Hospitalization, Other)
  Sender: NOVO NORDISK
  Company Number: US-NOVOPROD-1503025

PATIENT
  Age: 58 Year
  Sex: Female

DRUGS (8)
  1. OZEMPIC [Suspect]
     Active Substance: SEMAGLUTIDE
     Indication: Type 2 diabetes mellitus
     Dates: start: 20250703, end: 202507
  2. ALBUTEROL SULFATE [Concomitant]
     Active Substance: ALBUTEROL SULFATE
     Indication: Asthma
     Route: 055
  3. ESTRACE [Concomitant]
     Active Substance: ESTRADIOL
     Indication: Product used for unknown indication
  4. FAMOTIDINE [Concomitant]
     Active Substance: FAMOTIDINE
     Indication: Product used for unknown indication
  5. METROGEL [Concomitant]
     Active Substance: METRONIDAZOLE
     Indication: Product used for unknown indication
     Route: 061
  6. OMEGA-3 FATTY ACIDS\VITAMINS [Concomitant]
     Active Substance: OMEGA-3 FATTY ACIDS\VITAMINS
     Indication: Product used for unknown indication
  7. TRETINOIN [Concomitant]
     Active Substance: TRETINOIN
     Indication: Product used for unknown indication
     Route: 061
  8. METFORMIN [Concomitant]
     Active Substance: METFORMIN HYDROCHLORIDE
     Indication: Type 2 diabetes mellitus

REACTIONS (16)
  - Myalgia [Not Recovered/Not Resolved]
  - Dehydration [Unknown]
  - Muscle spasms [Unknown]
  - Condition aggravated [Unknown]
  - Mobility decreased [Unknown]
  - Stress [Unknown]
  - Full blood count abnormal [Unknown]
  - Electrolyte imbalance [Unknown]
  - Urine analysis abnormal [Unknown]
  - Spinal pain [Unknown]
  - Palpitations [Unknown]
  - Hyperuricaemia [Unknown]
  - Alanine aminotransferase increased [Unknown]
  - Blood creatinine decreased [Unknown]
  - Headache [Unknown]
  - Hypersensitivity [Unknown]
